FAERS Safety Report 4290535-7 (Version None)
Quarter: 2004Q1

REPORT INFORMATION
  Report Type: 
  Country: None (occurrence: None)
  Receive Date: 20040209
  Receipt Date: 20030731
  Transmission Date: 20041129
  Serious: Yes (Other)
  Sender: FDA-Public Use
  Company Number: WAES 0307USA03112

PATIENT
  Age: 50 Year
  Sex: Female

DRUGS (9)
  1. ZOCOR [Suspect]
     Indication: HYPERLIPIDAEMIA
     Dosage: 5 MG/DAILY
     Route: 048
     Dates: start: 19920908, end: 20010905
  2. AMLODIPINE BESYLATE [Concomitant]
  3. ASPIRIN [Concomitant]
  4. CILOSTAZOL [Concomitant]
  5. GLICLAZIDE [Concomitant]
  6. GLIMEPIRIDE [Concomitant]
  7. INSULIN HUMAN [Concomitant]
  8. ISOSORBIDE MONONITRATE [Concomitant]
  9. METFORMIN HCL [Concomitant]

REACTIONS (1)
  - ACUTE MYOCARDIAL INFARCTION [None]
